FAERS Safety Report 4642033-6 (Version None)
Quarter: 2005Q2

REPORT INFORMATION
  Report Type: 
  Country: None (occurrence: None)
  Receive Date: 20050420
  Receipt Date: 20050407
  Transmission Date: 20051028
  Serious: Yes (Disabling, Other)
  Sender: FDA-Public Use
  Company Number: 430100K04USA

PATIENT
  Age: 38 Year
  Sex: Female
  Weight: 83 kg

DRUGS (6)
  1. NOVANTRONE [Suspect]
     Indication: MULTIPLE SCLEROSIS
     Dosage: 12 MG/M2, 1 IN 3 MONTHS, INTRAVENOUS (NOS)
     Route: 042
     Dates: start: 20021101, end: 20040201
  2. ELAVIL [Concomitant]
  3. PROVIGIL [Concomitant]
  4. WELLBUTRIN [Concomitant]
  5. BACLOFEN [Concomitant]
  6. REBIF [Concomitant]

REACTIONS (4)
  - CARDIOMYOPATHY [None]
  - CHEST PAIN [None]
  - DYSPNOEA [None]
  - EJECTION FRACTION DECREASED [None]
